FAERS Safety Report 15259217 (Version 1)
Quarter: 2018Q3

REPORT INFORMATION
  Report Type: Spontaneous
  Country: FR (occurrence: FR)
  Receive Date: 20180809
  Receipt Date: 20180809
  Transmission Date: 20181010
  Serious: Yes (Death)
  Sender: FDA-Public Use
  Company Number: FR-JNJFOC-20180808828

PATIENT
  Age: 35 Year
  Sex: Male

DRUGS (5)
  1. HALDOL [Suspect]
     Active Substance: HALOPERIDOL
     Indication: DRUG ADMINISTRATION ERROR
     Route: 048
     Dates: start: 20180716, end: 20180716
  2. VALIUM [Suspect]
     Active Substance: DIAZEPAM
     Indication: DRUG ADMINISTRATION ERROR
     Route: 048
     Dates: start: 20180716, end: 20180716
  3. LEPTICUR [Suspect]
     Active Substance: TROPATEPINE HYDROCHLORIDE
     Indication: DRUG ADMINISTRATION ERROR
     Route: 048
     Dates: start: 20180716, end: 20180716
  4. DEPAKINE [Suspect]
     Active Substance: VALPROATE SODIUM
     Indication: DRUG ADMINISTRATION ERROR
     Route: 048
     Dates: start: 20180716, end: 20180716
  5. CLOZAPINE. [Suspect]
     Active Substance: CLOZAPINE
     Indication: DRUG ADMINISTRATION ERROR
     Route: 048
     Dates: start: 20180716, end: 20180716

REACTIONS (3)
  - Drug administration error [Not Recovered/Not Resolved]
  - Death [Fatal]
  - Somnolence [Not Recovered/Not Resolved]

NARRATIVE: CASE EVENT DATE: 20180716
